FAERS Safety Report 11307487 (Version 2)
Quarter: 2015Q3

REPORT INFORMATION
  Report Type: Spontaneous
  Country: DE (occurrence: DE)
  Receive Date: 20150723
  Receipt Date: 20150731
  Transmission Date: 20151125
  Serious: Yes (Life-Threatening, Hospitalization)
  Sender: FDA-Public Use
  Company Number: DE-ABBVIE-15K-062-1428103-00

PATIENT
  Age: 53 Year
  Sex: Male

DRUGS (1)
  1. HUMIRA [Suspect]
     Active Substance: ADALIMUMAB
     Indication: CROHN^S DISEASE
     Route: 058
     Dates: start: 201103, end: 201305

REACTIONS (7)
  - Neoplasm [Recovering/Resolving]
  - Sepsis [Recovered/Resolved]
  - Ileus [Recovered/Resolved]
  - Gastrointestinal fistula [Not Recovered/Not Resolved]
  - Gastrointestinal fistula [Recovered/Resolved with Sequelae]
  - Abdominal abscess [Recovered/Resolved with Sequelae]
  - Failure to anastomose [Recovered/Resolved]

NARRATIVE: CASE EVENT DATE: 201305
